FAERS Safety Report 24772407 (Version 1)
Quarter: 2024Q4

REPORT INFORMATION
  Report Type: Spontaneous
  Country: US (occurrence: US)
  Receive Date: 20241224
  Receipt Date: 20241224
  Transmission Date: 20250114
  Serious: No
  Sender: DAIICHI
  Company Number: US-DAIICHI SANKYO, INC.-DS-2024-116555-USAA

PATIENT
  Sex: Female

DRUGS (1)
  1. TURALIO [Suspect]
     Active Substance: PEXIDARTINIB HYDROCHLORIDE
     Indication: Oligomenorrhoea
     Dosage: 250 MG, BID
     Route: 048
     Dates: start: 202210

REACTIONS (2)
  - Sinusitis [Recovered/Resolved]
  - Off label use [Unknown]
